FAERS Safety Report 6939356-4 (Version None)
Quarter: 2010Q3

REPORT INFORMATION
  Report Type: 
  Country: None (occurrence: None)
  Receive Date: 20100824
  Receipt Date: 20100817
  Transmission Date: 20110219
  Serious: Yes (Other)
  Sender: FDA-Public Use
  Company Number: BR-ABBOTT-10P-020-0627728-00

PATIENT
  Sex: Female
  Weight: 80 kg

DRUGS (17)
  1. HUMIRA [Suspect]
     Indication: RHEUMATOID ARTHRITIS
     Route: 058
     Dates: start: 20090601, end: 20100501
  2. PREDNISONE [Concomitant]
     Indication: RHEUMATOID ARTHRITIS
     Route: 048
     Dates: start: 20070101
  3. ENALAPRIL [Concomitant]
     Indication: HYPERTENSION
     Route: 048
  4. METHYLDOPA [Concomitant]
     Indication: HYPERTENSION
     Route: 048
     Dates: start: 20090101
  5. OMEPRAZOLE [Concomitant]
     Indication: GASTRIC DISORDER
     Route: 048
     Dates: start: 20090101
  6. OMEPRAZOLE [Concomitant]
     Indication: GASTROOESOPHAGEAL REFLUX DISEASE
  7. FUROSEMIDE [Concomitant]
     Indication: FLUID RETENTION
     Route: 048
     Dates: start: 20090101
  8. FUROSEMIDE [Concomitant]
     Indication: DIURETIC THERAPY
  9. AMLODIPINE [Concomitant]
     Indication: HYPERTENSION
     Route: 048
  10. METHOTREXATE [Concomitant]
     Indication: RHEUMATOID ARTHRITIS
     Route: 048
     Dates: start: 20070101
  11. VERTIGIUM [Concomitant]
     Indication: LABYRINTHITIS
     Route: 048
     Dates: start: 20091001
  12. FOLIC ACID [Concomitant]
     Indication: VITAMIN SUPPLEMENTATION
     Route: 048
     Dates: start: 20070101
  13. LEVONORGESTREL AND ETHINYL ESTRADIOL [Concomitant]
     Indication: CONTRACEPTION
     Dates: start: 20070101
  14. PARACETAMOL [Concomitant]
     Indication: PAIN
     Route: 048
     Dates: start: 20070101
  15. PARACETAMOL [Concomitant]
  16. METFORMIN [Concomitant]
     Indication: DIABETES MELLITUS
     Route: 048
     Dates: start: 20090101
  17. VERTIX [Concomitant]
     Indication: LABYRINTHITIS
     Route: 048
     Dates: start: 20070101

REACTIONS (15)
  - AMNESIA [None]
  - BLOOD PRESSURE FLUCTUATION [None]
  - CONVULSION [None]
  - DIABETES MELLITUS [None]
  - DRUG INEFFECTIVE [None]
  - DYSPNOEA [None]
  - FATIGUE [None]
  - HYPERTENSION [None]
  - LIVER DISORDER [None]
  - MOVEMENT DISORDER [None]
  - MYALGIA [None]
  - NECK PAIN [None]
  - TACHYCARDIA [None]
  - VISUAL ACUITY REDUCED [None]
  - WEIGHT DECREASED [None]
